FAERS Safety Report 5176827-8 (Version None)
Quarter: 2006Q4

REPORT INFORMATION
  Report Type: 
  Country: None (occurrence: None)
  Receive Date: 20061212
  Receipt Date: 20061212
  Transmission Date: 20070319
  Serious: Yes (Hospitalization)
  Sender: FDA-Public Use
  Company Number: None

PATIENT
  Age: 49 Year
  Sex: Female
  Weight: 111.1313 kg

DRUGS (5)
  1. CETUXIMAB [Suspect]
     Indication: NEOPLASM MALIGNANT
     Dosage: 538 MG, WEEKLY, IV
     Route: 042
     Dates: start: 20060921, end: 20061012
  2. CETUXIMAB [Suspect]
     Indication: NEOPLASM MALIGNANT
     Dosage: 538 MG, WEEKLY, IV
     Route: 042
     Dates: start: 20061023, end: 20061120
  3. PACLITAXEL [Suspect]
     Indication: NEOPLASM MALIGNANT
     Dosage: 86.1 WEEKLY, IV
     Route: 042
     Dates: start: 20061023, end: 20061120
  4. CARBOPLATIN [Suspect]
     Indication: NEOPLASM MALIGNANT
     Dosage: 179 MG WEEKLY, IV
     Route: 042
     Dates: start: 20061023, end: 20061120
  5. RADIATION [Suspect]
     Indication: NEOPLASM MALIGNANT
     Dosage: 4500 CGY AT 180CGY
     Dates: start: 20061023, end: 20061122

REACTIONS (6)
  - DEHYDRATION [None]
  - FATIGUE [None]
  - NAUSEA [None]
  - RADIATION SKIN INJURY [None]
  - SKIN INFECTION [None]
  - VOMITING [None]
